FAERS Safety Report 12833109 (Version 1)
Quarter: 2016Q4

REPORT INFORMATION
  Report Type: Report from Study
  Country: GB (occurrence: GB)
  Receive Date: 20161010
  Receipt Date: 20161010
  Transmission Date: 20170207
  Serious: Yes (Hospitalization)
  Sender: FDA-Public Use
  Company Number: GB-JNJFOC-20161005564

PATIENT
  Age: 43 Year
  Sex: Female

DRUGS (5)
  1. MOVELAT [Concomitant]
     Route: 065
     Dates: start: 20110701
  2. ORLISTAT [Concomitant]
     Active Substance: ORLISTAT
     Route: 065
     Dates: start: 20120307
  3. TRAMADOL. [Concomitant]
     Active Substance: TRAMADOL
     Route: 065
     Dates: start: 20110701
  4. STELARA [Suspect]
     Active Substance: USTEKINUMAB
     Indication: PSORIASIS
     Route: 058
     Dates: start: 20100301
  5. NAPROXEN. [Concomitant]
     Active Substance: NAPROXEN
     Route: 065
     Dates: start: 20110802

REACTIONS (2)
  - Cholelithiasis [Unknown]
  - Pancreatitis acute [Unknown]

NARRATIVE: CASE EVENT DATE: 20131108
